FAERS Safety Report 10477272 (Version 1)
Quarter: 2014Q3

REPORT INFORMATION
  Report Type: Spontaneous
  Country: IT (occurrence: IT)
  Receive Date: 20140926
  Receipt Date: 20140926
  Transmission Date: 20150326
  Serious: Yes (Death, Hospitalization)
  Sender: FDA-Public Use
  Company Number: IT-DRREDDYS-GER/ITL/14/0043143

PATIENT
  Age: 70 Year
  Sex: Female

DRUGS (7)
  1. REMERON [Suspect]
     Active Substance: MIRTAZAPINE
     Indication: DEPRESSION
     Route: 048
     Dates: start: 20131201, end: 20140131
  2. FELISON [Suspect]
     Active Substance: FLURAZEPAM MONOHYDROCHLORIDE
     Indication: PRODUCT USED FOR UNKNOWN INDICATION
  3. FLURAZEPAM MONOHYDROCHLORIDE [Concomitant]
     Active Substance: FLURAZEPAM MONOHYDROCHLORIDE
     Indication: DEPRESSION
  4. QUETIAPINE [Suspect]
     Active Substance: QUETIAPINE
     Indication: DEPRESSION
     Route: 048
     Dates: start: 20131201, end: 20140131
  5. EN [Suspect]
     Active Substance: DELORAZEPAM
     Indication: PRODUCT USED FOR UNKNOWN INDICATION
  6. SEROQUEL [Suspect]
     Active Substance: QUETIAPINE FUMARATE
     Indication: PRODUCT USED FOR UNKNOWN INDICATION
  7. DELORAZEPAM [Concomitant]
     Active Substance: DELORAZEPAM
     Indication: DEPRESSION

REACTIONS (5)
  - Autoimmune haemolytic anaemia [Unknown]
  - Hypotension [Unknown]
  - Death [Fatal]
  - Anaemia [Unknown]
  - Dyspnoea [Unknown]

NARRATIVE: CASE EVENT DATE: 20140131
